FAERS Safety Report 4608478-5 (Version None)
Quarter: 2005Q1

REPORT INFORMATION
  Report Type: 
  Country: None (occurrence: None)
  Receive Date: 20050315
  Receipt Date: 20050224
  Transmission Date: 20050727
  Serious: Yes (Other)
  Sender: FDA-Public Use
  Company Number: US-GLAXOSMITHKLINE-A0547176A

PATIENT
  Age: 13 Year
  Sex: Male
  Weight: 36.8 kg

DRUGS (2)
  1. WELLBUTRIN SR [Suspect]
     Indication: DEPRESSION
     Route: 048
     Dates: start: 20020131
  2. NO CONCURRENT MEDICATION [Concomitant]

REACTIONS (2)
  - BREAST MASS [None]
  - GYNAECOMASTIA [None]
